FAERS Safety Report 10231961 (Version 1)
Quarter: 2014Q2

REPORT INFORMATION
  Report Type: Report from Study
  Country: FR (occurrence: FR)
  Receive Date: 20140612
  Receipt Date: 20140612
  Transmission Date: 20141212
  Serious: Yes (Hospitalization)
  Sender: FDA-Public Use
  Company Number: FR-ROCHE-1417279

PATIENT
  Age: 67 Year
  Sex: Female

DRUGS (3)
  1. MYCOPHENOLATE MOFETIL [Suspect]
     Indication: TRANSPLANT REJECTION
     Dosage: 0.5 MG ONCE A DAY?EFFERVESCENT TABLET
     Route: 002
     Dates: start: 20120209
  2. SOLUPRED (FRANCE) [Suspect]
     Indication: TRANSPLANT REJECTION
     Route: 002
     Dates: start: 20120210
  3. CERTICAN [Suspect]
     Indication: TRANSPLANT REJECTION
     Route: 002
     Dates: start: 20120320

REACTIONS (1)
  - Transplant rejection [Recovered/Resolved]
